FAERS Safety Report 6483597-X (Version None)
Quarter: 2009Q4

REPORT INFORMATION
  Report Type: 
  Country: None (occurrence: None)
  Receive Date: 20091209
  Receipt Date: 20091201
  Transmission Date: 20100525
  Serious: Yes (Death, Other)
  Sender: FDA-Public Use
  Company Number: PHEH2009US09221

PATIENT
  Sex: Male

DRUGS (3)
  1. AFINITOR [Suspect]
     Indication: RENAL CELL CARCINOMA
     Dosage: 10 MG, QD
     Dates: end: 20090607
  2. AFINITOR [Suspect]
     Dosage: 5 MG, QD
     Dates: start: 20090608, end: 20090731
  3. AFINITOR [Suspect]
     Dosage: 5 MG, QOD
     Dates: start: 20090812

REACTIONS (2)
  - LARGE INTESTINAL HAEMORRHAGE [None]
  - RENAL CELL CARCINOMA [None]
